FAERS Safety Report 4845455-3 (Version None)
Quarter: 2005Q4

REPORT INFORMATION
  Report Type: 
  Country: None (occurrence: None)
  Receive Date: 20051125
  Receipt Date: 20051117
  Transmission Date: 20060501
  Serious: Yes (Hospitalization)
  Sender: FDA-Public Use
  Company Number: 2005157846

PATIENT
  Age: 21 Year
  Sex: Female

DRUGS (3)
  1. ZELDOX (CAPSULES) (ZIPRASIDONE) [Suspect]
     Indication: SCHIZOPHRENIA, PARANOID TYPE
     Dosage: 80 MG
     Dates: start: 20040518, end: 20040520
  2. EDRONAX   (REBOXETINE) [Suspect]
     Indication: ILL-DEFINED DISORDER
     Dosage: 8 MG (DAILY), ORAL
     Route: 048
     Dates: start: 20040512
  3. SEROQUEL [Concomitant]
     Route: 048

REACTIONS (1)
  - GAZE PALSY [None]
